FAERS Safety Report 4984400-7 (Version None)
Quarter: 2006Q2

REPORT INFORMATION
  Report Type: 
  Country: None (occurrence: None)
  Receive Date: 20060420
  Receipt Date: 20060411
  Transmission Date: 20061013
  Serious: Yes (Hospitalization)
  Sender: FDA-Public Use
  Company Number: 2006-01422

PATIENT
  Age: 55 Year
  Sex: Male

DRUGS (2)
  1. FLUOROURACIL [Suspect]
     Indication: COLON CANCER STAGE III
     Dosage: 500 MG, DAILY X 5 DAYS, INTRAVENOUS
     Route: 042
  2. LEUCOVORIN CALCIUM [Suspect]
     Indication: COLON CANCER STAGE III
     Dosage: 50 MG, DAILY X 5 DAYS, INTRAVENOUS
     Route: 042

REACTIONS (3)
  - COLON CANCER [None]
  - LEUKOENCEPHALOMYELITIS [None]
  - NEOPLASM RECURRENCE [None]
